FAERS Safety Report 8266313-0 (Version None)
Quarter: 2012Q1

REPORT INFORMATION
  Report Type: 
  Country: None (occurrence: None)
  Receive Date: 20120327
  Receipt Date: 20091005
  Transmission Date: 20120608
  Serious: Yes (Other)
  Sender: FDA-Public Use
  Company Number: PHEH2009US11180

PATIENT
  Age: 76 Year
  Sex: Male
  Weight: 63.5036 kg

DRUGS (3)
  1. GLEEVEC [Suspect]
     Indication: GASTROINTESTINAL STROMAL TUMOUR
     Dosage: 400 MG, QD, ORAL
     Route: 048
     Dates: start: 20090723, end: 20090806
  2. LISINOPRIL/ HCTZ (HYDROCHLOROTIAZIDE, LISINOPRIL) [Concomitant]
  3. RANITIDINE HYDROCHLORIDE [Concomitant]

REACTIONS (3)
  - STEVENS-JOHNSON SYNDROME [None]
  - RASH [None]
  - PRURITUS [None]
